FAERS Safety Report 9144879 (Version 1)
Quarter: 2013Q1

REPORT INFORMATION
  Report Type: Spontaneous
  Country: US (occurrence: US)
  Receive Date: 20130307
  Receipt Date: 20130307
  Transmission Date: 20140127
  Serious: Yes (Other)
  Sender: FDA-Public Use
  Company Number: US-AMGEN-USASP2013014720

PATIENT
  Age: 71 Year
  Sex: 0

DRUGS (2)
  1. ENBREL [Suspect]
     Indication: NEURALGIA
     Dosage: UNK
  2. COUMADIN                           /00014802/ [Concomitant]
     Dosage: 4 MG, QD

REACTIONS (2)
  - Drug effect decreased [Unknown]
  - International normalised ratio abnormal [Unknown]
